FAERS Safety Report 9617915 (Version 1)
Quarter: 2013Q4

REPORT INFORMATION
  Report Type: Report from Study
  Country: US (occurrence: US)
  Receive Date: 20131011
  Receipt Date: 20131011
  Transmission Date: 20140711
  Serious: Yes (Death, Hospitalization)
  Sender: FDA-Public Use
  Company Number: US-ABBVIE-13P-163-1155602-00

PATIENT
  Age: 56 Year
  Sex: Male
  Weight: 95.34 kg

DRUGS (1)
  1. ZEMPLAR [Suspect]
     Indication: PRODUCT USED FOR UNKNOWN INDICATION
     Route: 040
     Dates: start: 201307, end: 20130930

REACTIONS (3)
  - Dyspnoea [Fatal]
  - Cardio-respiratory arrest [Fatal]
  - Thrombosis [Unknown]
